FAERS Safety Report 9069277 (Version 1)
Quarter: 2013Q1

REPORT INFORMATION
  Report Type: Report from Study
  Country: CA (occurrence: CA)
  Receive Date: 20130215
  Receipt Date: 20130215
  Transmission Date: 20140127
  Serious: Yes (Other)
  Sender: FDA-Public Use
  Company Number: CA-JNJFOC-20130115106

PATIENT
  Age: 60 None
  Sex: Female
  Weight: 110 kg

DRUGS (1)
  1. STELARA [Suspect]
     Indication: PSORIASIS
     Route: 058
     Dates: start: 20121224, end: 20121224

REACTIONS (7)
  - White blood cell count decreased [Unknown]
  - Pain [Unknown]
  - Erythema [Recovered/Resolved]
  - Skin warm [Recovered/Resolved]
  - Skin exfoliation [Recovered/Resolved]
  - Abdominal pain [Unknown]
  - Dysgeusia [Unknown]
